FAERS Safety Report 8889895 (Version 1)
Quarter: 2012Q4

REPORT INFORMATION
  Report Type: 
  Country: US (occurrence: US)
  Receive Date: 20121107
  Receipt Date: 20121107
  Transmission Date: 20130627
  Serious: No
  Sender: FDA-Public Use
  Company Number: US-009507513-1211USA000499

PATIENT
  Sex: Female

DRUGS (2)
  1. ASMANEX TWISTHALER [Suspect]
     Indication: ASTHMA
  2. DULERA [Suspect]
     Indication: ASTHMA
     Route: 055

REACTIONS (2)
  - Malaise [Unknown]
  - Drug ineffective [Unknown]
